FAERS Safety Report 8988838 (Version 1)
Quarter: 2012Q4

REPORT INFORMATION
  Report Type: Report from Study
  Country: FI (occurrence: FI)
  Receive Date: 20121228
  Receipt Date: 20121228
  Transmission Date: 20130627
  Serious: Yes (Hospitalization)
  Sender: FDA-Public Use
  Company Number: FI-ROCHE-1171902

PATIENT
  Age: 65 Year
  Sex: Female

DRUGS (2)
  1. BEVACIZUMAB [Suspect]
     Indication: OVARIAN CANCER
     Route: 065
     Dates: start: 20121010, end: 20121010
  2. CAELYX [Concomitant]

REACTIONS (2)
  - Gastrointestinal motility disorder [Unknown]
  - Hydronephrosis [Unknown]
